FAERS Safety Report 13611447 (Version 1)
Quarter: 2017Q2

REPORT INFORMATION
  Report Type: Spontaneous
  Country: US (occurrence: US)
  Receive Date: 20170605
  Receipt Date: 20170605
  Transmission Date: 20170830
  Serious: No
  Sender: FDA-Public Use
  Company Number: US-009507513-1705USA007721

PATIENT
  Age: 66 Year
  Sex: Female

DRUGS (2)
  1. PROVENTIL [Suspect]
     Active Substance: ALBUTEROL
     Indication: PNEUMONIA
     Dosage: UNK
     Route: 055
     Dates: start: 20170509, end: 201705
  2. PROVENTIL [Suspect]
     Active Substance: ALBUTEROL
     Indication: BRONCHITIS

REACTIONS (6)
  - Circumstance or information capable of leading to medication error [Unknown]
  - Underdose [Unknown]
  - Dysgeusia [Recovering/Resolving]
  - Drug ineffective [Recovering/Resolving]
  - Product taste abnormal [Unknown]
  - Product use in unapproved indication [Unknown]

NARRATIVE: CASE EVENT DATE: 201705
